FAERS Safety Report 7908857 (Version 6)
Quarter: 2012Q4

REPORT INFORMATION
  Report Type: Report from Study
  Country: IN (occurrence: US)
  Receive Date: 20110421
  Receipt Date: 20120927
  Transmission Date: 20130627
  Serious: Yes (Death, Hospitalization)
  Sender: FDA-Public Use
  Company Number: US-BRISTOL-MYERS SQUIBB COMPANY-15645294

PATIENT
  Age: 70 Year
  Sex: Female

DRUGS (3)
  1. IPILIMUMAB [Suspect]
     Indication: MALIGNANT MELANOMA
     Route: 042
     Dates: start: 20110324, end: 20110401
  2. METFORMIN HCL [Concomitant]
     Route: 048
     Dates: start: 2006
  3. ATIVAN [Concomitant]
     Dosage: 1df:1-1/2mg Q6h
     Route: 048
     Dates: start: 20110324

REACTIONS (3)
  - Respiratory failure [Fatal]
  - Visual impairment [Not Recovered/Not Resolved]
  - Mental status changes [Recovered/Resolved]
